FAERS Safety Report 7358356-6 (Version None)
Quarter: 2011Q1

REPORT INFORMATION
  Report Type: 
  Country: None (occurrence: None)
  Receive Date: 20110307
  Receipt Date: 20100216
  Transmission Date: 20110831
  Serious: No
  Sender: FDA-Public Use
  Company Number: AEUSA201000056

PATIENT
  Age: 58 Year
  Sex: Female

DRUGS (1)
  1. PROLASTIN [Suspect]
     Indication: ALPHA-1 ANTI-TRYPSIN DEFICIENCY
     Dosage: 6 GM;QW;IV
     Route: 042
     Dates: start: 20000101, end: 20100101

REACTIONS (2)
  - FLUID OVERLOAD [None]
  - FATIGUE [None]
